FAERS Safety Report 5566821-7 (Version None)
Quarter: 2007Q4

REPORT INFORMATION
  Report Type: 
  Country: None (occurrence: None)
  Receive Date: 20071219
  Receipt Date: 20071214
  Transmission Date: 20080405
  Serious: Yes (Hospitalization)
  Sender: FDA-Public Use
  Company Number: B0500082A

PATIENT
  Age: 56 Year
  Sex: Male

DRUGS (9)
  1. ARIXTRA [Suspect]
     Indication: DRUG USE FOR UNKNOWN INDICATION
     Dosage: 2.5MG PER DAY
     Route: 058
     Dates: start: 20071101, end: 20071101
  2. CORDARONE [Concomitant]
     Dosage: 1UNIT PER DAY
     Route: 048
  3. ATARAX [Concomitant]
     Dosage: 1UNIT PER DAY
     Route: 048
  4. DOLIPRANE [Concomitant]
     Dosage: 3UNIT PER DAY
     Route: 048
  5. INEXIUM [Concomitant]
     Dosage: 1UNIT TWICE PER DAY
     Route: 048
  6. LEXOMIL [Concomitant]
     Route: 048
  7. MOTILIUM [Concomitant]
     Dosage: 1UNIT THREE TIMES PER DAY
     Route: 048
  8. MIRTAZAPINE [Concomitant]
     Dosage: 1UNIT THREE TIMES PER DAY
     Route: 048
  9. STILNOX [Concomitant]
     Dosage: 1UNIT THREE TIMES PER DAY
     Route: 048

REACTIONS (2)
  - FATIGUE [None]
  - GAIT DISTURBANCE [None]
